FAERS Safety Report 25561385 (Version 3)
Quarter: 2025Q3

REPORT INFORMATION
  Report Type: Report from Study
  Country: US (occurrence: US)
  Receive Date: 20250716
  Receipt Date: 20250903
  Transmission Date: 20251021
  Serious: Yes (Hospitalization, Other)
  Sender: GLAXOSMITHKLINE
  Company Number: US-GLAXOSMITHKLINE INC-US2025056291

PATIENT
  Age: 51 Year
  Sex: Male

DRUGS (1)
  1. MEPOLIZUMAB [Suspect]
     Active Substance: MEPOLIZUMAB
     Indication: Asthma

REACTIONS (4)
  - Pneumonia [Unknown]
  - Asthma [Not Recovered/Not Resolved]
  - Sinus disorder [Unknown]
  - Illness [Unknown]

NARRATIVE: CASE EVENT DATE: 20250301
